FAERS Safety Report 14149735 (Version 3)
Quarter: 2018Q1

REPORT INFORMATION
  Report Type: Spontaneous
  Country: US (occurrence: US)
  Receive Date: 20171101
  Receipt Date: 20180115
  Transmission Date: 20180508
  Serious: Yes (Hospitalization, Other)
  Sender: FDA-Public Use
  Company Number: US-VIFOR (INTERNATIONAL) INC.-VIT-2017-10515

PATIENT
  Age: 45 Year
  Sex: Female

DRUGS (34)
  1. AMLODIPINE BESILATE [Concomitant]
     Active Substance: AMLODIPINE BESYLATE
  2. CITALOPRAM HYDROBROMIDE. [Concomitant]
     Active Substance: CITALOPRAM HYDROBROMIDE
  3. FOLIC ACID. [Concomitant]
     Active Substance: FOLIC ACID
  4. LORATADINE. [Concomitant]
     Active Substance: LORATADINE
  5. ROPINIROLE HYDROCHLORIDE. [Concomitant]
     Active Substance: ROPINIROLE HYDROCHLORIDE
  6. VENTOLIN HFA [Concomitant]
     Active Substance: ALBUTEROL SULFATE
  7. VELTASSA [Suspect]
     Active Substance: PATIROMER
     Indication: HYPERKALAEMIA
     Route: 048
     Dates: start: 20170512
  8. ALPRAZOLAM. [Concomitant]
     Active Substance: ALPRAZOLAM
  9. PROPYLENE GLYCOL [Concomitant]
     Active Substance: PROPYLENE GLYCOL
  10. BUSPIRONE HYDROCHLORIDE. [Concomitant]
     Active Substance: BUSPIRONE HYDROCHLORIDE
  11. LABETALOL HYDROCHLORIDE. [Concomitant]
     Active Substance: LABETALOL HYDROCHLORIDE
  12. OMEPRAZOLE. [Concomitant]
     Active Substance: OMEPRAZOLE
  13. COLECALCIFEROL [Concomitant]
     Active Substance: CHOLECALCIFEROL
  14. ATORVASTATIN CALCIUM. [Concomitant]
     Active Substance: ATORVASTATIN CALCIUM
  15. LOPERAMIDE HYDROCHLORIDE. [Concomitant]
     Active Substance: LOPERAMIDE HYDROCHLORIDE
  16. METOCLOPRAMIDE HYDROCHLORIDE. [Concomitant]
     Active Substance: METOCLOPRAMIDE HYDROCHLORIDE
  17. ONDANSETRON HYDROCHLORIDE. [Concomitant]
     Active Substance: ONDANSETRON HYDROCHLORIDE
  18. RENA-VITE RX [Concomitant]
     Active Substance: ASCORBIC ACID\BIOTIN\CALCIUM PANTOTHENATE\CYANOCOBALAMIN\FOLIC ACID\NIACINAMIDE\PYRIDOXINE HYDROCHLORIDE\RIBOFLAVIN\THIAMINE MONONITRATE
  19. SUCRALFATE. [Concomitant]
     Active Substance: SUCRALFATE
  20. VELTASSA [Suspect]
     Active Substance: PATIROMER
     Route: 048
  21. PARACETAMOL [Concomitant]
     Active Substance: ACETAMINOPHEN
  22. PARACETAMOL~~OXYCODONE HYDROCHLORIDE [Concomitant]
  23. SILTUSSIN SA [Concomitant]
     Active Substance: GUAIFENESIN
  24. TRAZODONE HYDROCHLORIDE. [Concomitant]
     Active Substance: TRAZODONE HYDROCHLORIDE
  25. CEPACOL SORE THROAT NOS [Concomitant]
     Active Substance: BENZOCAINE\MENTHOL OR DYCLONINE HYDROCHLORIDE\GLYCERIN
  26. GLUCAGON. [Concomitant]
     Active Substance: GLUCAGON
  27. LEVOTHYROXINE SODIUM. [Concomitant]
     Active Substance: LEVOTHYROXINE SODIUM
  28. CLONIDINE HYDROCHLORIDE. [Concomitant]
     Active Substance: CLONIDINE HYDROCHLORIDE
  29. SALBUTAMOL SULFATE [Concomitant]
     Active Substance: ALBUTEROL SULFATE
  30. BENZONATATE. [Concomitant]
     Active Substance: BENZONATATE
  31. NOVOLOG [Concomitant]
     Active Substance: INSULIN ASPART
  32. TOUJEO [Concomitant]
     Active Substance: INSULIN GLARGINE
  33. METAMUCIL [Concomitant]
     Active Substance: PLANTAGO SEED
  34. SENNA LAXATIVE [Concomitant]
     Active Substance: SENNOSIDES

REACTIONS (5)
  - Myocardial infarction [Unknown]
  - Pneumonia [Unknown]
  - Dialysis [Unknown]
  - Blood potassium increased [Unknown]
  - Off label use [Unknown]

NARRATIVE: CASE EVENT DATE: 20170512
